FAERS Safety Report 8050723-0 (Version None)
Quarter: 2012Q1

REPORT INFORMATION
  Report Type: 
  Country: None (occurrence: None)
  Receive Date: 20120117
  Receipt Date: 20120117
  Transmission Date: 20120608
  Serious: Yes (Other)
  Sender: FDA-Public Use
  Company Number: None

PATIENT
  Age: 69 Year
  Sex: Male
  Weight: 78.471 kg

DRUGS (12)
  1. FLUOXETINE HYDROCHLORIDE [Concomitant]
     Route: 048
  2. HEPARIN SODIUM [Concomitant]
     Route: 058
  3. PANTOPRAZOLE [Concomitant]
     Route: 048
  4. POTASSIUM CHLORIDE [Concomitant]
     Route: 048
  5. LORAZEPAM [Concomitant]
     Route: 042
  6. ONDANSETRON HYDROCHLORIDE [Concomitant]
     Route: 042
  7. HYDROCODONE BITARTRATE AND ACETAMINOPHEN [Concomitant]
     Route: 048
  8. FLUOROURACIL [Suspect]
     Indication: RECTAL CANCER
     Dosage: 50MG/ML X 0.3ML/HR
     Route: 042
  9. ACETAMINOPHEN [Concomitant]
     Route: 048
  10. MAGNESIUM SULFATE [Concomitant]
     Route: 042
  11. ONDANSETRON [Concomitant]
     Route: 048
  12. DRONABINOL [Concomitant]
     Route: 048

REACTIONS (1)
  - CONVULSION [None]
